FAERS Safety Report 21965843 (Version 1)
Quarter: 2023Q1

REPORT INFORMATION
  Report Type: Spontaneous
  Country: US (occurrence: US)
  Receive Date: 20230208
  Receipt Date: 20230208
  Transmission Date: 20230418
  Serious: No
  Sender: FDA-Public Use
  Company Number: US-SA-SAC20230203000168

PATIENT
  Age: 63 Year
  Sex: Female
  Weight: 102.05 kg

DRUGS (24)
  1. FABRAZYME [Suspect]
     Active Substance: AGALSIDASE BETA
     Indication: Lipidosis
     Dosage: 105 MG, QOW
     Route: 042
     Dates: start: 20180222
  2. FABRAZYME [Suspect]
     Active Substance: AGALSIDASE BETA
     Indication: Fabry^s disease
  3. LASIX [Concomitant]
     Active Substance: FUROSEMIDE
  4. CYMBALTA [Concomitant]
     Active Substance: DULOXETINE HYDROCHLORIDE
  5. TYLENOL [Concomitant]
     Active Substance: ACETAMINOPHEN
  6. ALBUTEROL [Concomitant]
     Active Substance: ALBUTEROL
  7. OMEPRAZOLE [Concomitant]
     Active Substance: OMEPRAZOLE
  8. PLAVIX [Concomitant]
     Active Substance: CLOPIDOGREL BISULFATE
  9. CANRENOATE POTASSIUM [Concomitant]
     Active Substance: CANRENOATE POTASSIUM
  10. NORVASC [Concomitant]
     Active Substance: AMLODIPINE BESYLATE
  11. LIPITOR [Concomitant]
     Active Substance: ATORVASTATIN CALCIUM
  12. SYNTHROID [Concomitant]
     Active Substance: LEVOTHYROXINE SODIUM
  13. TEGRETOL [Concomitant]
     Active Substance: CARBAMAZEPINE
  14. ZOFRAN [Concomitant]
     Active Substance: ONDANSETRON HYDROCHLORIDE
  15. MECLIZINE [Concomitant]
     Active Substance: MECLIZINE HYDROCHLORIDE
  16. CALCIUM [Concomitant]
     Active Substance: CALCIUM
  17. NITROGLYCERIN [Concomitant]
     Active Substance: NITROGLYCERIN
  18. EPIPEN [EPINEPHRINE] [Concomitant]
  19. TOPROL XL [Concomitant]
     Active Substance: METOPROLOL SUCCINATE
  20. LOSARTAN [Concomitant]
     Active Substance: LOSARTAN
  21. ISOSORBIDE MONONITE [Concomitant]
  22. POTASSIUM CHLORIDE [Concomitant]
     Active Substance: POTASSIUM CHLORIDE
  23. MAGNESIUM [Concomitant]
     Active Substance: MAGNESIUM
  24. COENZYME Q10 [Concomitant]
     Active Substance: DIETARY SUPPLEMENT\UBIDECARENONE

REACTIONS (3)
  - Ear infection [Unknown]
  - Sinusitis [Unknown]
  - Product use in unapproved indication [Unknown]

NARRATIVE: CASE EVENT DATE: 20180222
